FAERS Safety Report 4525359-6 (Version None)
Quarter: 2004Q4

REPORT INFORMATION
  Report Type: 
  Country: None (occurrence: None)
  Receive Date: 20041117
  Receipt Date: 20020305
  Transmission Date: 20050328
  Serious: Yes (Other)
  Sender: FDA-Public Use
  Company Number: C2002-0151.01

PATIENT
  Age: 52 Year
  Sex: Female

DRUGS (7)
  1. CLOZAPINE [Suspect]
     Indication: SCHIZOPHRENIA
     Dosage: 900 MG, QD, ORAL
     Route: 048
     Dates: start: 20010801
  2. CARBAMAZEPINE [Concomitant]
  3. LITHIUM [Concomitant]
  4. BENZTROPINE MESYLATE [Concomitant]
  5. MESYLATE [Concomitant]
  6. TRAZODONE HCL [Concomitant]
  7. LAMOTRIGINE [Concomitant]

REACTIONS (1)
  - CONVULSION [None]
